FAERS Safety Report 8435265-2 (Version None)
Quarter: 2012Q2

REPORT INFORMATION
  Report Type: 
  Country: None (occurrence: None)
  Receive Date: 20120614
  Receipt Date: 20120604
  Transmission Date: 20120825
  Serious: Yes (Other)
  Sender: FDA-Public Use
  Company Number: US-VERTEX PHARMACEUTICALS INC.-AE-2012-008134

PATIENT
  Sex: Male

DRUGS (3)
  1. RIBAVIRIN [Concomitant]
     Indication: HEPATITIS C
     Dates: start: 20120323
  2. PEG-INTRON [Concomitant]
     Indication: HEPATITIS C
     Dates: start: 20120323
  3. INCIVEK [Suspect]
     Indication: HEPATITIS C
     Dates: start: 20120323

REACTIONS (5)
  - DEHYDRATION [None]
  - DYSPNOEA [None]
  - VOMITING [None]
  - ASTHENIA [None]
  - NAUSEA [None]
